FAERS Safety Report 25520024 (Version 1)
Quarter: 2025Q3

REPORT INFORMATION
  Report Type: Spontaneous
  Country: US (occurrence: US)
  Receive Date: 20250704
  Receipt Date: 20250704
  Transmission Date: 20251020
  Serious: No
  Sender: SANOFI AVENTIS
  Company Number: US-SA-2025SA188326

PATIENT
  Sex: Female
  Weight: 77 kg

DRUGS (7)
  1. DUPIXENT [Suspect]
     Active Substance: DUPILUMAB
     Indication: Eczema
     Route: 058
     Dates: start: 20240208
  2. MUPIROCIN [Concomitant]
     Active Substance: MUPIROCIN
  3. AMOXICILLIN [Concomitant]
     Active Substance: AMOXICILLIN
  4. PROCHLORPERAZINE EDISYLATE [Concomitant]
     Active Substance: PROCHLORPERAZINE EDISYLATE
  5. TETANUS TOXOID ADSORBED (VACCINE) [Concomitant]
     Active Substance: TETANUS TOXOIDS
  6. CLOBETASOL [Concomitant]
     Active Substance: CLOBETASOL
  7. HYDROCORTISONE [Concomitant]
     Active Substance: HYDROCORTISONE

REACTIONS (4)
  - Paraesthesia [Recovered/Resolved]
  - Skin infection [Unknown]
  - Trigeminal nerve disorder [Unknown]
  - Herpes virus infection [Unknown]
